FAERS Safety Report 21533678 (Version 2)
Quarter: 2022Q4

REPORT INFORMATION
  Report Type: Report from Study
  Country: US (occurrence: US)
  Receive Date: 20221101
  Receipt Date: 20221124
  Transmission Date: 20230113
  Serious: No
  Sender: FDA-Public Use
  Company Number: US-ABBVIE-22K-163-4411398-00

PATIENT
  Sex: Female

DRUGS (4)
  1. HUMIRA [Suspect]
     Active Substance: ADALIMUMAB
     Indication: Hidradenitis
     Dosage: TIME INTERVAL: TOTAL: DAY 1
     Route: 058
     Dates: start: 202112, end: 202112
  2. HUMIRA [Suspect]
     Active Substance: ADALIMUMAB
     Dosage: DAY 15 FORM STRENGTH 80 MG
     Route: 058
     Dates: start: 202112, end: 202112
  3. HUMIRA [Suspect]
     Active Substance: ADALIMUMAB
     Dosage: DAY 29 FORM STRENGTH 80 MG
     Route: 058
     Dates: start: 202112, end: 202208
  4. HUMIRA [Suspect]
     Active Substance: ADALIMUMAB
     Dosage: FORM STRENGTH 80 MG
     Route: 058
     Dates: start: 2022

REACTIONS (8)
  - Cough [Unknown]
  - Pruritus [Unknown]
  - Arthritis [Unknown]
  - Chest pain [Unknown]
  - Dermal cyst [Unknown]
  - Hyperhidrosis [Unknown]
  - Pain of skin [Unknown]
  - Pain [Unknown]

NARRATIVE: CASE EVENT DATE: 20220101
